FAERS Safety Report 24131352 (Version 2)
Quarter: 2024Q3

REPORT INFORMATION
  Report Type: Report from Study
  Country: US (occurrence: US)
  Receive Date: 20240724
  Receipt Date: 20240812
  Transmission Date: 20241016
  Serious: Yes (Hospitalization, Other)
  Sender: ABBVIE
  Company Number: US-ABBVIE-5847633

PATIENT
  Age: 85 Year
  Sex: Male

DRUGS (1)
  1. IMBRUVICA [Suspect]
     Active Substance: IBRUTINIB
     Indication: Chronic lymphocytic leukaemia
     Route: 048
     Dates: start: 202204

REACTIONS (8)
  - Deafness unilateral [Unknown]
  - Asthenia [Unknown]
  - Fall [Unknown]
  - Pneumonia [Unknown]
  - Gait inability [Unknown]
  - Dementia Alzheimer^s type [Unknown]
  - White blood cell count abnormal [Unknown]
  - Amnesia [Unknown]

NARRATIVE: CASE EVENT DATE: 20240601
